FAERS Safety Report 13194845 (Version 6)
Quarter: 2017Q2

REPORT INFORMATION
  Report Type: Spontaneous
  Country: US (occurrence: US)
  Receive Date: 20170207
  Receipt Date: 20170606
  Transmission Date: 20170830
  Serious: Yes (Hospitalization)
  Sender: FDA-Public Use
  Company Number: US-ACTELION-A-US2017-149611

PATIENT
  Age: 15 Month
  Sex: Male
  Weight: 8.16 kg

DRUGS (5)
  1. TRACLEER [Suspect]
     Active Substance: BOSENTAN
     Indication: PULMONARY HYPERTENSION
     Dosage: 15.625 MG, BID
     Route: 050
  2. WARFARIN [Concomitant]
     Active Substance: WARFARIN
  3. TRACLEER [Suspect]
     Active Substance: BOSENTAN
     Dosage: 31.25 MG, QD
     Route: 048
  4. REMODULIN [Concomitant]
     Active Substance: TREPROSTINIL
  5. SILDENAFIL CITRATE. [Concomitant]
     Active Substance: SILDENAFIL CITRATE

REACTIONS (8)
  - Viral infection [Unknown]
  - Pulmonary hypertension [Unknown]
  - Endotracheal intubation [Unknown]
  - Blood culture negative [Unknown]
  - Respiratory failure [Unknown]
  - Cardiogenic shock [Unknown]
  - Respiratory tract infection [Unknown]
  - Sepsis [Unknown]
